FAERS Safety Report 13366548 (Version 1)
Quarter: 2017Q1

REPORT INFORMATION
  Report Type: Report from Study
  Country: US (occurrence: US)
  Receive Date: 20170323
  Receipt Date: 20170323
  Transmission Date: 20170429
  Serious: Yes (Other)
  Sender: FDA-Public Use
  Company Number: US-BIOGEN-2017BI00359973

PATIENT
  Sex: Female

DRUGS (1)
  1. TYSABRI [Suspect]
     Active Substance: NATALIZUMAB
     Indication: MULTIPLE SCLEROSIS
     Dosage: INFUSED OVER 1 HOUR
     Route: 042
     Dates: start: 20150719, end: 201606

REACTIONS (6)
  - Anger [Not Recovered/Not Resolved]
  - Joint injury [Not Recovered/Not Resolved]
  - Phobia [Not Recovered/Not Resolved]
  - Arthralgia [Unknown]
  - Osteonecrosis [Unknown]
  - Nervousness [Not Recovered/Not Resolved]
